FAERS Safety Report 4384007-9 (Version None)
Quarter: 2004Q2

REPORT INFORMATION
  Report Type: 
  Country: None (occurrence: None)
  Receive Date: 20040621
  Receipt Date: 20040407
  Transmission Date: 20050107
  Serious: Yes (Hospitalization)
  Sender: FDA-Public Use
  Company Number: M2004.0330

PATIENT
  Age: 25 Year
  Sex: Male
  Weight: 64 kg

DRUGS (3)
  1. FLUOXETINE [Suspect]
     Indication: DEPRESSION
     Dosage: 20M PO QD
     Route: 048
     Dates: start: 19970101
  2. DIAZEPAM [Concomitant]
  3. COBAMAMIDE/CYPROHEPTADINE HYDROCHLORIDE [Concomitant]

REACTIONS (3)
  - DRUG TOXICITY [None]
  - PHARMACEUTICAL PRODUCT COMPLAINT [None]
  - PRURITUS [None]
